FAERS Safety Report 5724694-3 (Version None)
Quarter: 2008Q2

REPORT INFORMATION
  Report Type: 
  Country: None (occurrence: None)
  Receive Date: 20080430
  Receipt Date: 20080430
  Transmission Date: 20081010
  Serious: Yes (Other)
  Sender: FDA-Public Use
  Company Number: None

PATIENT
  Sex: Male
  Weight: 104.3273 kg

DRUGS (2)
  1. LISINOPRIL AND HYDROCHLOROTHIAZIDE [Suspect]
     Indication: PREHYPERTENSION
     Dosage: 1 TAB DAILY PO
     Route: 048
     Dates: start: 20050803, end: 20080408
  2. ACIPHEX [Concomitant]

REACTIONS (25)
  - ASTHENIA [None]
  - BACK PAIN [None]
  - BURNING SENSATION [None]
  - CONFUSIONAL STATE [None]
  - COUGH [None]
  - DISTURBANCE IN ATTENTION [None]
  - DIZZINESS [None]
  - DYSPEPSIA [None]
  - DYSPHONIA [None]
  - FATIGUE [None]
  - HEADACHE [None]
  - HYPOTONIA [None]
  - INITIAL INSOMNIA [None]
  - MIDDLE INSOMNIA [None]
  - MULTIPLE SCLEROSIS [None]
  - MUSCLE SPASMS [None]
  - MUSCULAR WEAKNESS [None]
  - MYALGIA [None]
  - NECK PAIN [None]
  - PAIN [None]
  - PAIN IN EXTREMITY [None]
  - SENSATION OF HEAVINESS [None]
  - SEXUAL DYSFUNCTION [None]
  - SPEECH DISORDER [None]
  - STUPOR [None]
